FAERS Safety Report 23436735 (Version 3)
Quarter: 2024Q3

REPORT INFORMATION
  Report Type: Spontaneous
  Country: NL (occurrence: NL)
  Receive Date: 20240124
  Receipt Date: 20240920
  Transmission Date: 20241017
  Serious: Yes (Hospitalization, Other)
  Sender: AUROBINDO
  Company Number: NL-GLAXOSMITHKLINE-NL2024GSK002771

PATIENT
  Age: 30 Year

DRUGS (11)
  1. DOLOPHINE [Suspect]
     Active Substance: METHADONE HYDROCHLORIDE
     Indication: Thoracic operation
     Dosage: 100 MILLIGRAM
     Route: 065
  2. DOLOPHINE [Suspect]
     Active Substance: METHADONE HYDROCHLORIDE
     Dosage: 80 MILLIGRAM, ONCE A DAY (80 MG 1X PER DAY)
     Route: 065
  3. DOLOPHINE [Suspect]
     Active Substance: METHADONE HYDROCHLORIDE
     Dosage: 80 MILLIGRAM, ONCE A DAY (80 MG 1X PER DAY)
     Route: 065
  4. HEROIN [Suspect]
     Active Substance: DIAMORPHINE
     Indication: Product used for unknown indication
     Dosage: UNK
     Route: 065
  5. COCAINE [Concomitant]
     Active Substance: COCAINE
     Indication: Product used for unknown indication
     Dosage: 0.5 GRAM, EVERY WEEK (0.5 G ONCE A WEEK)
     Route: 065
  6. OXYCODONE [Concomitant]
     Active Substance: OXYCODONE
     Indication: Analgesic therapy
     Route: 065
  7. ACETAMINOPHEN [Concomitant]
     Active Substance: ACETAMINOPHEN
     Indication: Analgesic therapy
     Dosage: UNK
     Route: 065
  8. IBUPROFEN [Concomitant]
     Active Substance: IBUPROFEN
     Indication: Pericarditis
     Dosage: UNK
     Route: 065
  9. IBUPROFEN [Concomitant]
     Active Substance: IBUPROFEN
     Indication: Prophylaxis
  10. COLCHICINE [Concomitant]
     Active Substance: COLCHICINE
     Indication: Pericarditis
     Dosage: UNK
     Route: 065
  11. COLCHICINE [Concomitant]
     Active Substance: COLCHICINE
     Indication: Prophylaxis

REACTIONS (3)
  - Drug dependence [Unknown]
  - Pain [Recovered/Resolved]
  - Drug withdrawal syndrome [Recovered/Resolved]
